FAERS Safety Report 22198623 (Version 3)
Quarter: 2023Q2

REPORT INFORMATION
  Report Type: Report from Study
  Country: US (occurrence: US)
  Receive Date: 20230411
  Receipt Date: 20230518
  Transmission Date: 20230721
  Serious: Yes (Other)
  Sender: FDA-Public Use
  Company Number: US-JAZZ-2022-US-018427

PATIENT
  Age: 60 Year
  Sex: Female

DRUGS (7)
  1. XYWAV [Suspect]
     Active Substance: CALCIUM OXYBATE\MAGNESIUM OXYBATE\POTASSIUM OXYBATE\SODIUM OXYBATE
     Indication: Narcolepsy
     Dosage: 3.5 GRAM (BEDTIME)
     Route: 048
  2. XYWAV [Suspect]
     Active Substance: CALCIUM OXYBATE\MAGNESIUM OXYBATE\POTASSIUM OXYBATE\SODIUM OXYBATE
     Indication: Cataplexy
     Dosage: 3.75 GRAM, QD
  3. XYWAV [Suspect]
     Active Substance: CALCIUM OXYBATE\MAGNESIUM OXYBATE\POTASSIUM OXYBATE\SODIUM OXYBATE
     Indication: Somnolence
     Dosage: 3.25GM FIRST DOSE AND 1GM SECOND DOSE
  4. XYREM [Suspect]
     Active Substance: SODIUM OXYBATE
     Indication: Narcolepsy
     Dosage: UNK
     Route: 048
  5. XYREM [Suspect]
     Active Substance: SODIUM OXYBATE
     Indication: Cataplexy
  6. XYREM [Suspect]
     Active Substance: SODIUM OXYBATE
     Indication: Somnolence
  7. BREO ELLIPTA [Concomitant]
     Active Substance: FLUTICASONE FUROATE\VILANTEROL TRIFENATATE
     Indication: Product used for unknown indication
     Dosage: UNK
     Dates: start: 20211227

REACTIONS (15)
  - Bradycardia [Unknown]
  - Asthma [Unknown]
  - Overweight [Unknown]
  - Blood triglycerides increased [Unknown]
  - COVID-19 [Unknown]
  - Blood cholesterol increased [Unknown]
  - Bronchial hyperreactivity [Unknown]
  - Palpitations [Unknown]
  - Insomnia [Unknown]
  - Depression [Unknown]
  - Anxiety [Unknown]
  - Therapeutic response changed [Unknown]
  - Drug ineffective [Unknown]
  - Intentional product use issue [Unknown]
  - Off label use [Unknown]

NARRATIVE: CASE EVENT DATE: 20210201
